FAERS Safety Report 8903302 (Version 3)
Quarter: 2013Q1

REPORT INFORMATION
  Report Type: Report from Study
  Country: JP (occurrence: JP)
  Receive Date: 20121113
  Receipt Date: 20130206
  Transmission Date: 20140127
  Serious: Yes (Hospitalization, Other)
  Sender: FDA-Public Use
  Company Number: JP-009507513-2012SP034170

PATIENT
  Age: 55 Year
  Sex: Male
  Weight: 75 kg

DRUGS (17)
  1. PEGINTRON [Suspect]
     Indication: CHRONIC HEPATITIS C
     Dosage: 1.5MCG/KG/WEEK
     Route: 058
     Dates: start: 20120414, end: 20120927
  2. REBETOL [Suspect]
     Indication: CHRONIC HEPATITIS C
     Dosage: 1000 MG, QD
     Route: 048
     Dates: start: 20120414, end: 20120516
  3. REBETOL [Suspect]
     Dosage: 800 MG, QD
     Route: 048
     Dates: start: 20120517, end: 20120608
  4. REBETOL [Suspect]
     Dosage: 600 MG, QD
     Route: 048
     Dates: start: 20120609
  5. REBETOL [Suspect]
     Dosage: 500 MG, QD
     Route: 048
     Dates: start: 20120621, end: 20120719
  6. REBETOL [Suspect]
     Dosage: 200 MG, QD
     Route: 048
     Dates: start: 20120720, end: 20120726
  7. REBETOL [Suspect]
     Dosage: 400 MG, QD
     Route: 048
     Dates: start: 20120727, end: 20120802
  8. REBETOL [Suspect]
     Dosage: 600 MG, QD
     Route: 048
     Dates: start: 20120803, end: 20120809
  9. REBETOL [Suspect]
     Dosage: 800 MG, QD
     Route: 048
     Dates: start: 20120810, end: 20120927
  10. TELAVIC [Suspect]
     Indication: CHRONIC HEPATITIS C
     Dosage: 2000 MG, QD
     Route: 048
     Dates: start: 20120414, end: 20120509
  11. TELAVIC [Suspect]
     Dosage: 2250 MG, QD
     Route: 048
     Dates: start: 20120510, end: 20120707
  12. TOWARAT L [Concomitant]
     Indication: HYPERTENSION
     Dosage: FORMULATION: POR
     Route: 048
  13. TOWARAT L [Concomitant]
     Dosage: 10 MG, QD
     Route: 048
  14. GASMOTIN [Concomitant]
     Indication: PROPHYLAXIS
     Dosage: 15 MG, QD
     Route: 048
     Dates: start: 20120414, end: 20120927
  15. OMERAP [Concomitant]
     Indication: PROPHYLAXIS
     Dosage: 20 MG, QD, POR
     Route: 048
     Dates: end: 20120927
  16. SEDEKOPAN [Concomitant]
     Indication: PROPHYLAXIS
     Dosage: 1.5 MG, QD, POR
     Route: 048
     Dates: end: 20120927
  17. ALLOPURINOL [Concomitant]
     Indication: PROPHYLAXIS
     Dosage: 200 MG, QD, POR
     Route: 048
     Dates: end: 20120719

REACTIONS (3)
  - Decreased appetite [Recovering/Resolving]
  - Erythema multiforme [Not Recovered/Not Resolved]
  - Rash [Recovered/Resolved]
